FAERS Safety Report 7405661-0 (Version None)
Quarter: 2011Q2

REPORT INFORMATION
  Report Type: 
  Country: None (occurrence: None)
  Receive Date: 20110411
  Receipt Date: 20110405
  Transmission Date: 20111010
  Serious: Yes (Hospitalization, Disabling)
  Sender: FDA-Public Use
  Company Number: PHHY2011GB28942

PATIENT
  Age: 70 Year
  Sex: Female

DRUGS (3)
  1. COMTAN [Suspect]
     Indication: PARKINSON'S DISEASE
     Dosage: 200 MG, 5 IN A DAY
     Route: 048
     Dates: start: 20101115
  2. MIRAPEXIN [Concomitant]
     Dosage: UNK
  3. MADOPAR [Concomitant]
     Dosage: UNK

REACTIONS (2)
  - DEHYDRATION [None]
  - INFLAMMATORY BOWEL DISEASE [None]
